FAERS Safety Report 21466348 (Version 3)
Quarter: 2022Q4

REPORT INFORMATION
  Report Type: Report from Study
  Country: FR (occurrence: FR)
  Receive Date: 20221017
  Receipt Date: 20221125
  Transmission Date: 20230112
  Serious: Yes (Other)
  Sender: FDA-Public Use
  Company Number: FR-ViiV Healthcare Limited-FR2022EME146557

PATIENT

DRUGS (1)
  1. DOLUTEGRAVIR SODIUM\LAMIVUDINE [Suspect]
     Active Substance: DOLUTEGRAVIR SODIUM\LAMIVUDINE
     Indication: HIV infection
     Dosage: UNK

REACTIONS (2)
  - Hyperbilirubinaemia [Unknown]
  - Monkeypox [Unknown]

NARRATIVE: CASE EVENT DATE: 20220727
